FAERS Safety Report 8329170-X (Version None)
Quarter: 2012Q2

REPORT INFORMATION
  Report Type: 
  Country: None (occurrence: None)
  Receive Date: 20120502
  Receipt Date: 20101027
  Transmission Date: 20120825
  Serious: No
  Sender: FDA-Public Use
  Company Number: US-TEVA-2010005652

PATIENT
  Sex: Female

DRUGS (1)
  1. NUVIGIL [Suspect]
     Indication: POOR QUALITY SLEEP
     Route: 048

REACTIONS (2)
  - RASH PRURITIC [None]
  - HYPERSENSITIVITY [None]
